FAERS Safety Report 4750390-5 (Version None)
Quarter: 2005Q3

REPORT INFORMATION
  Report Type: 
  Country: None (occurrence: None)
  Receive Date: 20050818
  Receipt Date: 20050811
  Transmission Date: 20060218
  Serious: Yes (Life-Threatening, Hospitalization)
  Sender: FDA-Public Use
  Company Number: SP-2005-002297

PATIENT
  Age: 89 Year
  Sex: Male
  Weight: 73 kg

DRUGS (1)
  1. OLMETEC PLUS [Suspect]
     Indication: HYPERTENSION
     Dosage: 20 /25 MG
     Dates: start: 20050802, end: 20050806

REACTIONS (2)
  - SWELLING FACE [None]
  - URTICARIA GENERALISED [None]
